FAERS Safety Report 24177210 (Version 1)
Quarter: 2024Q3

REPORT INFORMATION
  Report Type: Spontaneous
  Country: US (occurrence: None)
  Receive Date: 20240806
  Receipt Date: 20240806
  Transmission Date: 20241016
  Serious: Yes (Disabling)
  Sender: ASTRAZENECA
  Company Number: 2024A173124

PATIENT
  Age: 25456 Day
  Sex: Male
  Weight: 122.5 kg

DRUGS (1)
  1. TEZSPIRE [Suspect]
     Active Substance: TEZEPELUMAB-EKKO
     Indication: Asthma
     Route: 058
     Dates: start: 20240216, end: 20240318

REACTIONS (2)
  - Arthralgia [Not Recovered/Not Resolved]
  - Arthralgia [Not Recovered/Not Resolved]

NARRATIVE: CASE EVENT DATE: 20240321
